FAERS Safety Report 4308942-2 (Version None)
Quarter: 2004Q1

REPORT INFORMATION
  Report Type: 
  Country: None (occurrence: None)
  Receive Date: 20040227
  Receipt Date: 20040216
  Transmission Date: 20041129
  Serious: Yes (Death)
  Sender: FDA-Public Use
  Company Number: AU-JNJFOC-20040102850

PATIENT
  Age: 57 Year
  Sex: Male
  Weight: 52 kg

DRUGS (13)
  1. DUROGESIC (FENTANYL) PATCH [Suspect]
     Dosage: 2.5 MG, 1 IN 72 HOUR, TRANSDERMAL; 3 PATCHES LEFT ON INADVERTENTLY
     Route: 062
     Dates: start: 20031011, end: 20031022
  2. STEROIDS (CORTICOSTEROID NOS) [Concomitant]
  3. COLOXYL WITH SENNA (COLOXYL WITH SENNA) [Concomitant]
  4. PREDNISOLONE [Concomitant]
  5. ALPRAZOLAM [Concomitant]
  6. SPIRIVA (ALL OTHER THERAPEUTIC PRODUCTS) [Concomitant]
  7. SERTRALINE (SERTRALINE) [Concomitant]
  8. SALMETEROL (SALMETEROL) AEROSOLS [Concomitant]
  9. PANADOL (PARACETAMOL) [Concomitant]
  10. TRAMADOL HCL [Concomitant]
  11. ALENDRONATE (ALENDRONATE SODOUM) [Concomitant]
  12. CALTRATE (CALCIUM CARBONATE) TABLETS [Concomitant]
  13. VENTOLIN [Concomitant]

REACTIONS (2)
  - ACUTE RESPIRATORY FAILURE [None]
  - MEDICATION ERROR [None]
